FAERS Safety Report 13218922 (Version 1)
Quarter: 2017Q1

REPORT INFORMATION
  Report Type: Other
  Country: GB (occurrence: EG)
  Receive Date: 20170210
  Receipt Date: 20170210
  Transmission Date: 20170428
  Serious: Yes (Hospitalization)
  Sender: FDA-Public Use
  Company Number: EG-INTERNATIONAL MEDICATION SYSTEMS, LIMITED-1062986

PATIENT
  Age: 50 Year
  Sex: Female

DRUGS (2)
  1. PETHIDINE [Concomitant]
     Active Substance: MEPERIDINE
  2. EPINEPHRINE. [Suspect]
     Active Substance: EPINEPHRINE
     Indication: SEDATION
     Route: 042

REACTIONS (4)
  - Chest discomfort [Recovered/Resolved]
  - Dyspnoea [Recovered/Resolved]
  - Tremor [Recovered/Resolved]
  - Drug administration error [Recovered/Resolved]
